FAERS Safety Report 6818834-2 (Version None)
Quarter: 2010Q2

REPORT INFORMATION
  Report Type: 
  Country: None (occurrence: None)
  Receive Date: 20100630
  Receipt Date: 20100611
  Transmission Date: 20101027
  Serious: Yes (Hospitalization, Disabling, Other)
  Sender: FDA-Public Use
  Company Number: WAES 0809USA00132

PATIENT
  Age: 65 Year
  Sex: Male
  Weight: 79.8331 kg

DRUGS (15)
  1. VYTORIN [Suspect]
     Indication: ACUTE CORONARY SYNDROME
     Dosage: 10-40 MG/DAILY/PO
     Route: 048
     Dates: start: 20061220, end: 20090805
  2. BISOPROLOL [Suspect]
     Dosage: 1.25 MG/DAILY/PO
     Route: 048
     Dates: start: 20061216, end: 20070525
  3. BISOPROLOL [Suspect]
     Dosage: 1.25 MG/DAILY/PO
     Route: 048
     Dates: start: 20080505
  4. PLACEBO (UNSPECIFIED) UNK [Suspect]
     Indication: ACUTE CORONARY SYNDROME
     Dosage: PO
     Route: 048
     Dates: start: 20061220, end: 20090805
  5. CLARITHROMYCIN [Suspect]
     Dosage: 1000 MG/DAILY/PO
     Route: 048
     Dates: start: 20070524, end: 20070525
  6. NITROGLYCERIN [Concomitant]
  7. SERETIDE [Concomitant]
  8. ALBUTEROL [Concomitant]
  9. ASPIRIN [Concomitant]
  10. CLOPIDOGREL BISULFATE [Concomitant]
  11. FUROSEMIDE [Concomitant]
  12. IPRATROPIUM BROMIDE [Concomitant]
  13. LISINOPRIL [Concomitant]
  14. QUININE BISULFATE [Concomitant]
  15. TIOTROPIUM BROMIDE [Concomitant]

REACTIONS (9)
  - BLOOD PH DECREASED [None]
  - CHRONIC OBSTRUCTIVE PULMONARY DISEASE [None]
  - CONDITION AGGRAVATED [None]
  - COUGH [None]
  - DYSPNOEA [None]
  - EXERCISE TOLERANCE DECREASED [None]
  - INFLUENZA LIKE ILLNESS [None]
  - LOWER RESPIRATORY TRACT INFECTION [None]
  - SPUTUM DISCOLOURED [None]
